FAERS Safety Report 21253141 (Version 1)
Quarter: 2022Q3

REPORT INFORMATION
  Report Type: Spontaneous
  Country: US (occurrence: None)
  Receive Date: 20220824
  Receipt Date: 20220824
  Transmission Date: 20221027
  Serious: No
  Sender: FDA-Public Use
  Company Number: None

PATIENT
  Age: 10 Year
  Sex: Female
  Weight: 31 kg

DRUGS (2)
  1. STELARA [Suspect]
     Active Substance: USTEKINUMAB
  2. COSMETICS [Suspect]
     Active Substance: COSMETICS

REACTIONS (4)
  - Pain [None]
  - Pain in extremity [None]
  - Joint stiffness [None]
  - Joint noise [None]

NARRATIVE: CASE EVENT DATE: 20220815
